FAERS Safety Report 21474963 (Version 2)
Quarter: 2022Q4

REPORT INFORMATION
  Report Type: Spontaneous
  Country: US (occurrence: US)
  Receive Date: 20221019
  Receipt Date: 20221124
  Transmission Date: 20230113
  Serious: No
  Sender: FDA-Public Use
  Company Number: US-ORGANON-O2210USA000032

PATIENT
  Sex: Female

DRUGS (14)
  1. PREGNYL [Suspect]
     Active Substance: CHORIOGONADOTROPIN ALFA
     Indication: Infertility female
     Dosage: INJECTED 10000 UNITS IN THE MUSCLE ONCE AS DIRECTED
     Route: 030
     Dates: start: 20220817
  2. STERILE WATER [Suspect]
     Active Substance: WATER
     Dosage: UNK
     Route: 030
     Dates: start: 20220817
  3. FOLLISTIM AQ [Suspect]
     Active Substance: FOLLITROPIN
     Indication: Infertility female
     Dosage: 900 INTERNATIONAL UNIT (IU)/1.08 MILLILITRE (ML), INJECT 225 UNITS UNDER THE SKIN DAILY AS DIRECTED
     Route: 058
     Dates: start: 20220610
  4. GANIRELIX ACETATE [Concomitant]
     Active Substance: GANIRELIX ACETATE
  5. ASPIRIN [Concomitant]
     Active Substance: ASPIRIN
     Dosage: UNK
  6. DOXYCYCLA [Concomitant]
  7. ENDOMETRIN [Concomitant]
     Active Substance: PROGESTERONE
     Dosage: (1=1)
  8. FOLIC ACID [Concomitant]
     Active Substance: FOLIC ACID
  9. GONADOTROPHIN, CHORIONIC [Concomitant]
     Active Substance: GONADOTROPHIN, CHORIONIC
     Dosage: 1000 UNIT MDV
  10. LETROZOLE [Concomitant]
     Active Substance: LETROZOLE
  11. LEUPROLIDE ACETATE [Concomitant]
     Active Substance: LEUPROLIDE ACETATE
     Dosage: 1 MG/0.2 ML MDV, 1=2.8
  12. MENOPUR [Concomitant]
     Active Substance: FOLLITROPIN\LUTEINIZING HORMONE
     Dosage: SDV W/Q-CAP
  13. PRENATAL 19 [Concomitant]
     Active Substance: .ALPHA.-TOCOPHEROL ACETATE, DL-\.BETA.-CAROTENE\ASCORBIC ACID\CALCIUM CARBONATE\CALCIUM PANTOTHENATE
  14. PROGESTERONE [Concomitant]
     Active Substance: PROGESTERONE
     Dosage: UNK, 50 MG/ML MDV 10 ML

REACTIONS (2)
  - Injection site erythema [Unknown]
  - Maternal exposure during pregnancy [Unknown]
